FAERS Safety Report 6715783-5 (Version None)
Quarter: 2010Q2

REPORT INFORMATION
  Report Type: 
  Country: None (occurrence: None)
  Receive Date: 20100507
  Receipt Date: 20100428
  Transmission Date: 20101027
  Serious: Yes (Other)
  Sender: FDA-Public Use
  Company Number: US-ELI_LILLY_AND_COMPANY-US201005000208

PATIENT
  Sex: Female

DRUGS (1)
  1. BYETTA [Suspect]
     Dosage: 5 UG, UNK
     Dates: start: 20100331, end: 20100426

REACTIONS (7)
  - APHONIA [None]
  - BLOOD PRESSURE FLUCTUATION [None]
  - GENERALISED ERYTHEMA [None]
  - OXYGEN SATURATION [None]
  - PRURITUS [None]
  - SWELLING [None]
  - SWOLLEN TONGUE [None]
